FAERS Safety Report 8178797-7 (Version None)
Quarter: 2012Q1

REPORT INFORMATION
  Report Type: 
  Country: None (occurrence: None)
  Receive Date: 20120301
  Receipt Date: 20120220
  Transmission Date: 20120608
  Serious: Yes (Death, Other)
  Sender: FDA-Public Use
  Company Number: US-BRISTOL-MYERS SQUIBB COMPANY-16426959

PATIENT
  Age: 56 Year
  Sex: Female

DRUGS (1)
  1. MEGESTROL ACETATE [Suspect]
     Indication: SARCOMA UTERUS
     Dosage: 1DF:80-160MG

REACTIONS (2)
  - NEOPLASM MALIGNANT [None]
  - MENINGIOMA [None]
